FAERS Safety Report 15969797 (Version 2)
Quarter: 2021Q2

REPORT INFORMATION
  Report Type: Spontaneous
  Country: US (occurrence: US)
  Receive Date: 20190215
  Receipt Date: 20210521
  Transmission Date: 20210716
  Serious: Yes (Other)
  Sender: FDA-Public Use
  Company Number: PHEH2019US006834

PATIENT
  Sex: Female

DRUGS (1)
  1. TASIGNA [Suspect]
     Active Substance: NILOTINIB
     Indication: CHRONIC MYELOID LEUKAEMIA
     Dosage: 150 MG, BID
     Route: 048
     Dates: start: 201110, end: 201804

REACTIONS (37)
  - Lung neoplasm malignant [Unknown]
  - Cerebral atrophy [Unknown]
  - Goitre [Unknown]
  - Memory impairment [Unknown]
  - Arteriosclerosis [Unknown]
  - Chest discomfort [Unknown]
  - Back pain [Unknown]
  - Vision blurred [Unknown]
  - Anxiety [Unknown]
  - Colorectal cancer [Unknown]
  - Right atrial dilatation [Unknown]
  - Dyspnoea [Unknown]
  - Speech disorder [Unknown]
  - Emotional distress [Unknown]
  - Second primary malignancy [Unknown]
  - Osteoarthritis [Unknown]
  - Abdominal hernia [Unknown]
  - Atrial flutter [Unknown]
  - Mitral valve incompetence [Unknown]
  - Toxic goitre [Unknown]
  - Left atrial dilatation [Unknown]
  - Pericardial effusion [Unknown]
  - Gait disturbance [Unknown]
  - Chest pain [Unknown]
  - Deafness [Unknown]
  - Mitral valve prolapse [Unknown]
  - Transient ischaemic attack [Unknown]
  - Pulmonary mass [Unknown]
  - Dysphagia [Unknown]
  - Arthritis [Unknown]
  - Skin cancer [Unknown]
  - Hypothyroidism [Unknown]
  - Cerebrovascular accident [Unknown]
  - Cognitive disorder [Unknown]
  - Injury [Unknown]
  - Tachycardia [Unknown]
  - Pain [Unknown]
